FAERS Safety Report 8382647-3 (Version None)
Quarter: 2012Q2

REPORT INFORMATION
  Report Type: 
  Country: None (occurrence: None)
  Receive Date: 20120524
  Receipt Date: 20120515
  Transmission Date: 20120825
  Serious: Yes (Hospitalization)
  Sender: FDA-Public Use
  Company Number: DE-SANOFI-AVENTIS-2012SA024294

PATIENT
  Age: 51 Year
  Sex: Male
  Weight: 113 kg

DRUGS (7)
  1. CABAZITAXEL [Suspect]
     Route: 042
     Dates: start: 20120119, end: 20120119
  2. AMIODARONE HCL [Concomitant]
     Route: 048
     Dates: start: 20111101
  3. SIMVASTATIN [Concomitant]
     Route: 048
     Dates: start: 20090501
  4. PANTOPRAZOLE [Concomitant]
     Route: 048
     Dates: start: 20120127
  5. LUTEINIZING HORMONE-RELEASING HORMONE [Concomitant]
     Route: 057
     Dates: start: 20101001
  6. PREDNISONE TAB [Suspect]
     Route: 048
     Dates: start: 20120119, end: 20120404
  7. CABAZITAXEL [Suspect]
     Route: 042
     Dates: start: 20120329, end: 20120329

REACTIONS (3)
  - HYPOTENSION [None]
  - GASTRITIS [None]
  - LEUKOPENIA [None]
